FAERS Safety Report 6097554-9 (Version None)
Quarter: 2009Q1

REPORT INFORMATION
  Report Type: 
  Country: None (occurrence: None)
  Receive Date: 20090227
  Receipt Date: 20081031
  Transmission Date: 20090719
  Serious: No
  Sender: FDA-Public Use
  Company Number: A0754423A

PATIENT
  Sex: Female

DRUGS (4)
  1. IMITREX [Suspect]
     Indication: MIGRAINE
     Route: 058
  2. IMITREX [Suspect]
     Dosage: 100MG AS REQUIRED
     Route: 048
  3. SYNTHROID [Concomitant]
  4. ALPRAZOLAM [Concomitant]

REACTIONS (4)
  - FEELING HOT [None]
  - FLUSHING [None]
  - HEART RATE INCREASED [None]
  - PARAESTHESIA [None]
